FAERS Safety Report 11636841 (Version 1)
Quarter: 2015Q4

REPORT INFORMATION
  Report Type: Spontaneous
  Country: US (occurrence: US)
  Receive Date: 20151016
  Receipt Date: 20151016
  Transmission Date: 20160304
  Serious: No
  Sender: FDA-Public Use
  Company Number: US-GALDERMA-US15005594

PATIENT

DRUGS (1)
  1. SOOLANTRA [Suspect]
     Active Substance: IVERMECTIN
     Dosage: 1%
     Route: 061

REACTIONS (4)
  - Rosacea [Unknown]
  - Condition aggravated [Unknown]
  - Pruritus [Unknown]
  - Dermatitis allergic [Unknown]
